FAERS Safety Report 7490412-4 (Version None)
Quarter: 2011Q2

REPORT INFORMATION
  Report Type: 
  Country: None (occurrence: None)
  Receive Date: 20110517
  Receipt Date: 20110517
  Transmission Date: 20111010
  Serious: Yes (Other)
  Sender: FDA-Public Use
  Company Number: None

PATIENT
  Sex: Female

DRUGS (10)
  1. DEXAMETHASONE [Concomitant]
  2. ATENOLOL [Concomitant]
  3. HYDROCODONE BITARTRATE AND ACETAMINOPHEN [Concomitant]
  4. DIPHENOXYLATE HCL + ATROPINE SULFATE [Concomitant]
  5. FLUOXETINE [Concomitant]
  6. ALBUTEROL SULFATE AUTOHALER [Concomitant]
  7. ASPIRIN [Concomitant]
  8. OMEPRAZOLE [Concomitant]
  9. REVLIMID [Suspect]
     Indication: MULTIPLE MYELOMA
     Dosage: REVLIMID 15MG QOD X 21 DAYS PO
     Route: 048
     Dates: start: 20100601, end: 20100901
  10. REVLIMID [Suspect]
     Indication: MULTIPLE MYELOMA
     Dosage: REVLIMID 15MG QOD X 21 DAYS PO
     Route: 048
     Dates: start: 20090401, end: 20090901

REACTIONS (2)
  - FATIGUE [None]
  - TRANSAMINASES INCREASED [None]
